FAERS Safety Report 7593479-8 (Version None)
Quarter: 2011Q3

REPORT INFORMATION
  Report Type: 
  Country: None (occurrence: None)
  Receive Date: 20110706
  Receipt Date: 20110629
  Transmission Date: 20111222
  Serious: Yes (Hospitalization)
  Sender: FDA-Public Use
  Company Number: DK-PFIZER INC-2011007609

PATIENT
  Age: 36 Year
  Sex: Female

DRUGS (4)
  1. HYDROCORTISONE [Suspect]
     Dosage: 20 MG, 1X/DAY
  2. SOMATROPIN [Suspect]
     Indication: GROWTH HORMONE DEFICIENCY
     Dosage: 0.6 MG, 1X/DAY
     Dates: start: 19780101
  3. KALEORID [Concomitant]
     Dosage: 1500 MG, UNK
  4. SOLU-CORTEF [Concomitant]
     Dosage: 100 MG, UNK
     Route: 042

REACTIONS (1)
  - ADRENOCORTICAL INSUFFICIENCY ACUTE [None]
